FAERS Safety Report 13109147 (Version 1)
Quarter: 2017Q1

REPORT INFORMATION
  Report Type: Spontaneous
  Country: US (occurrence: US)
  Receive Date: 20170112
  Receipt Date: 20170112
  Transmission Date: 20170428
  Serious: No
  Sender: FDA-Public Use
  Company Number: None

PATIENT
  Age: 69 Year
  Sex: Male
  Weight: 106.6 kg

DRUGS (7)
  1. SHARK CARTILAGE [Concomitant]
     Active Substance: SHARK CARTILAGE\SHARK, UNSPECIFIED
  2. TEA [Concomitant]
     Active Substance: TEA LEAF
  3. OMEGA 3-6-9 [Concomitant]
     Active Substance: FISH OIL
  4. XARELTO [Suspect]
     Active Substance: RIVAROXABAN
     Indication: ATRIAL FIBRILLATION
     Route: 048
     Dates: start: 20160829, end: 201612
  5. PACEMAKER [Concomitant]
  6. C [Concomitant]
  7. GNC MEGA MEN [Concomitant]

REACTIONS (1)
  - Alopecia [None]
